FAERS Safety Report 19035065 (Version 2)
Quarter: 2021Q2

REPORT INFORMATION
  Report Type: Spontaneous
  Country: CA (occurrence: CA)
  Receive Date: 20210320
  Receipt Date: 20210405
  Transmission Date: 20210717
  Serious: Yes (Life-Threatening, Hospitalization, Other)
  Sender: FDA-Public Use
  Company Number: CA-ASTRAZENECA-2021A165318

PATIENT
  Age: 52 Year
  Sex: Female
  Weight: 81.7 kg

DRUGS (10)
  1. VITAMIN C [Concomitant]
     Active Substance: ASCORBIC ACID
  2. FERAMAX [Concomitant]
     Active Substance: IRON\POLYSACCHARIDES
  3. METFORMIN [Concomitant]
     Active Substance: METFORMIN HYDROCHLORIDE
  4. FERAMAX [Concomitant]
     Active Substance: IRON\POLYSACCHARIDES
  5. VITAMIN C [Concomitant]
     Active Substance: ASCORBIC ACID
  6. VITAMIN D3 [Concomitant]
     Active Substance: CHOLECALCIFEROL
  7. VICTOZA [Concomitant]
     Active Substance: LIRAGLUTIDE
  8. CELEBREX [Concomitant]
     Active Substance: CELECOXIB
  9. VITAMIN D3 [Concomitant]
     Active Substance: CHOLECALCIFEROL
  10. FORXIGA [Suspect]
     Active Substance: DAPAGLIFLOZIN
     Indication: TYPE 2 DIABETES MELLITUS
     Route: 048
     Dates: start: 201610, end: 20210215

REACTIONS (4)
  - Erosive oesophagitis [Unknown]
  - Euglycaemic diabetic ketoacidosis [Not Recovered/Not Resolved]
  - Renal impairment [Unknown]
  - Oesophageal haemorrhage [Unknown]

NARRATIVE: CASE EVENT DATE: 20210215
